FAERS Safety Report 9398594 (Version 1)
Quarter: 2013Q3

REPORT INFORMATION
  Report Type: Spontaneous
  Country: IT (occurrence: IT)
  Receive Date: 20130712
  Receipt Date: 20130712
  Transmission Date: 20140515
  Serious: Yes (Other)
  Sender: FDA-Public Use
  Company Number: IT-ELI_LILLY_AND_COMPANY-IT201307000723

PATIENT
  Sex: Female

DRUGS (5)
  1. TERIPARATIDE [Suspect]
     Dosage: 20 UG, QD
     Route: 058
  2. PARATHYROID HORMONE [Suspect]
     Dosage: 100 UG, QD
     Route: 058
     Dates: start: 20111202, end: 20121010
  3. IVABRADINE [Concomitant]
     Dosage: UNK
     Dates: start: 20120601
  4. IDEOS [Concomitant]
     Indication: SUPPLEMENTATION THERAPY
  5. ALENDRONATE [Concomitant]
     Dosage: UNK

REACTIONS (2)
  - Basal cell carcinoma [Unknown]
  - Spinal compression fracture [Unknown]
